FAERS Safety Report 13757460 (Version 3)
Quarter: 2019Q1

REPORT INFORMATION
  Report Type: Spontaneous
  Country: US (occurrence: US)
  Receive Date: 20170717
  Receipt Date: 20190327
  Transmission Date: 20190417
  Serious: Yes (Other)
  Sender: FDA-Public Use
  Company Number: US-AMGEN-USASP2017103632

PATIENT
  Age: 62 Year
  Sex: Male
  Weight: 122.45 kg

DRUGS (1)
  1. ENBREL [Suspect]
     Active Substance: ETANERCEPT
     Indication: RHEUMATOID ARTHRITIS
     Dosage: UNK
     Route: 065

REACTIONS (7)
  - Injection site pruritus [Unknown]
  - Accidental exposure to product [Unknown]
  - Rheumatoid arthritis [Not Recovered/Not Resolved]
  - Injection site erythema [Unknown]
  - Muscle rupture [Unknown]
  - Injection site irritation [Unknown]
  - Injection site warmth [Unknown]

NARRATIVE: CASE EVENT DATE: 201805
